FAERS Safety Report 21152285 (Version 1)
Quarter: 2022Q3

REPORT INFORMATION
  Report Type: Spontaneous
  Country: US (occurrence: US)
  Receive Date: 20220730
  Receipt Date: 20220730
  Transmission Date: 20221027
  Serious: No
  Sender: FDA-Public Use
  Company Number: US-SA-SAC20220720001928

PATIENT
  Age: 51 Year
  Sex: Female

DRUGS (1)
  1. DUPIXENT [Suspect]
     Active Substance: DUPILUMAB
     Indication: Dermatitis atopic
     Dosage: 300 MG, QOW
     Route: 058
     Dates: start: 20211214, end: 20220718

REACTIONS (7)
  - Food allergy [Unknown]
  - Hypersensitivity [Unknown]
  - Urticaria [Unknown]
  - Abdominal discomfort [Unknown]
  - Facial discomfort [Unknown]
  - Lip disorder [Unknown]
  - Eye disorder [Unknown]

NARRATIVE: CASE EVENT DATE: 20220717
